FAERS Safety Report 22029846 (Version 5)
Quarter: 2023Q2

REPORT INFORMATION
  Report Type: Spontaneous
  Country: CA (occurrence: CA)
  Receive Date: 20230223
  Receipt Date: 20230525
  Transmission Date: 20230721
  Serious: Yes (Other)
  Sender: FDA-Public Use
  Company Number: CA-PFIZER INC-202201064047

PATIENT
  Age: 65 Year
  Sex: Female

DRUGS (4)
  1. ABRILADA [Suspect]
     Active Substance: ADALIMUMAB-AFZB
     Indication: Polyarthritis
     Dosage: 40 MG, EVERY 2 WEEKS PREFILLED PEN
     Route: 058
     Dates: start: 20220506
  2. ABRILADA [Suspect]
     Active Substance: ADALIMUMAB-AFZB
     Indication: Ankylosing spondylitis
     Dosage: 40 MG, EVERY 2 WEEKS PREFILLED PEN
     Route: 058
  3. CELEBREX [Concomitant]
     Active Substance: CELECOXIB
     Dosage: 1 DF, UNK DOSE, FREQ, START DATE
     Route: 065
  4. METHOTREXATE [Concomitant]
     Active Substance: METHOTREXATE
     Dosage: 1 DF, UNK DOSE, FREQ, START DATE
     Route: 065

REACTIONS (10)
  - Foot fracture [Recovered/Resolved]
  - Off label use [Unknown]
  - Condition aggravated [Not Recovered/Not Resolved]
  - Arthralgia [Not Recovered/Not Resolved]
  - Headache [Not Recovered/Not Resolved]
  - COVID-19 [Recovered/Resolved with Sequelae]
  - Fatigue [Not Recovered/Not Resolved]
  - Device defective [Unknown]
  - Device mechanical issue [Unknown]
  - Inappropriate schedule of product administration [Unknown]

NARRATIVE: CASE EVENT DATE: 20220101
